FAERS Safety Report 5488195-2 (Version None)
Quarter: 2007Q4

REPORT INFORMATION
  Report Type: 
  Country: None (occurrence: None)
  Receive Date: 20071017
  Receipt Date: 20071005
  Transmission Date: 20080405
  Serious: Yes (Other)
  Sender: FDA-Public Use
  Company Number: HQWYE851801JUL04

PATIENT
  Sex: Female

DRUGS (5)
  1. PREMPRO [Suspect]
     Indication: HORMONE REPLACEMENT THERAPY
     Dosage: UNSPECIFIED
     Route: 048
  2. MEDROXYPROGESTERONE ACETATE [Suspect]
  3. ESTROGEN NOS [Suspect]
  4. PREMARIN [Suspect]
     Indication: HORMONE REPLACEMENT THERAPY
     Dosage: UNSPECIFIED
     Route: 048
  5. PROVERA [Suspect]

REACTIONS (5)
  - ATRIAL TACHYCARDIA [None]
  - BREAST CANCER METASTATIC [None]
  - BUNDLE BRANCH BLOCK LEFT [None]
  - MYOCARDIAL INFARCTION [None]
  - THROMBOSIS [None]
